FAERS Safety Report 25132642 (Version 1)
Quarter: 2025Q1

REPORT INFORMATION
  Report Type: Spontaneous
  Country: US (occurrence: US)
  Receive Date: 20250328
  Receipt Date: 20250328
  Transmission Date: 20250408
  Serious: No
  Sender: APOTEX
  Company Number: US-APOTEX-2025AP003372

PATIENT
  Sex: Female

DRUGS (1)
  1. FLUTICASONE PROPIONATE [Suspect]
     Active Substance: FLUTICASONE PROPIONATE
     Indication: Sinus disorder
     Route: 065

REACTIONS (1)
  - Rash pruritic [Unknown]
